FAERS Safety Report 6153227-5 (Version None)
Quarter: 2009Q2

REPORT INFORMATION
  Report Type: 
  Country: None (occurrence: None)
  Receive Date: 20090413
  Receipt Date: 20090403
  Transmission Date: 20091009
  Serious: Yes (Hospitalization, Other)
  Sender: FDA-Public Use
  Company Number: US-ELI_LILLY_AND_COMPANY-US200902000971

PATIENT
  Sex: Female

DRUGS (6)
  1. FORTEO [Suspect]
     Indication: OSTEOPOROSIS
     Dosage: UNK, UNK
     Dates: start: 20090105, end: 20090101
  2. FORTEO [Suspect]
     Dosage: UNK, UNK
     Dates: start: 20090101
  3. ASPIRIN [Concomitant]
     Dosage: 0.5 D/F, UNK
  4. LISINOPRIL [Concomitant]
  5. HYDROCHLOROTHIAZIDE [Concomitant]
     Dosage: 0.5 D/F, UNK
  6. ANTIHYPERTENSIVES [Concomitant]

REACTIONS (2)
  - MUSCLE SPASMS [None]
  - RENAL CANCER [None]
